FAERS Safety Report 9925932 (Version 2)
Quarter: 2014Q1

REPORT INFORMATION
  Report Type: Spontaneous
  Country: FR (occurrence: FR)
  Receive Date: 20140226
  Receipt Date: 20140310
  Transmission Date: 20141002
  Serious: Yes (Life-Threatening, Hospitalization, Other)
  Sender: FDA-Public Use
  Company Number: FR-PFIZER INC-2014052894

PATIENT
  Age: 48 Year
  Sex: Male

DRUGS (14)
  1. TRIATEC [Suspect]
     Dosage: 10 MG, DAILY
     Route: 048
     Dates: end: 20140204
  2. CEFOTAXIME MYLAN [Suspect]
     Indication: PNEUMONIA INFLUENZAL
     Dosage: 1 G, 3X/DAY
     Route: 042
     Dates: start: 20140129, end: 20140201
  3. CANCIDAS [Suspect]
     Indication: PNEUMONIA INFLUENZAL
     Dosage: 70 MG (1 DF), DAILY
     Route: 042
     Dates: start: 20140129, end: 20140131
  4. PROGRAF [Concomitant]
  5. CERTICAN [Concomitant]
  6. CORTANCYL [Concomitant]
  7. INIPOMP [Concomitant]
  8. KARDEGIC [Concomitant]
  9. TAHOR [Concomitant]
  10. EUPRESSYL [Concomitant]
  11. BACTRIM FORTE [Concomitant]
  12. NOVONORM [Concomitant]
  13. LEVEMIR [Concomitant]
  14. ARANESP [Concomitant]

REACTIONS (4)
  - Dysphagia [Recovered/Resolved]
  - Tongue oedema [Recovered/Resolved]
  - Lung disorder [Unknown]
  - Angioedema [Unknown]
